FAERS Safety Report 23492624 (Version 1)
Quarter: 2024Q1

REPORT INFORMATION
  Report Type: Spontaneous
  Country: US (occurrence: US)
  Receive Date: 20240207
  Receipt Date: 20240207
  Transmission Date: 20240410
  Serious: No
  Sender: FDA-Public Use
  Company Number: US-OPELLA-2024OHG003543

PATIENT
  Age: 83 Year
  Sex: Male

DRUGS (1)
  1. CORTIZONE 10 [Suspect]
     Active Substance: HYDROCORTISONE
     Indication: Pruritus

REACTIONS (3)
  - Dizziness [Unknown]
  - Headache [Unknown]
  - Expired product administered [Unknown]
